FAERS Safety Report 4990977-8 (Version None)
Quarter: 2006Q2

REPORT INFORMATION
  Report Type: 
  Country: None (occurrence: None)
  Receive Date: 20060503
  Receipt Date: 20060427
  Transmission Date: 20061013
  Serious: Yes (Congenital Anomaly, Other)
  Sender: FDA-Public Use
  Company Number: US-MERCK-0604USA04195

PATIENT

DRUGS (1)
  1. MAXALT [Suspect]
     Indication: MIGRAINE
     Dates: start: 20040101

REACTIONS (3)
  - ABORTION SPONTANEOUS [None]
  - CHROMOSOME ABNORMALITY [None]
  - TURNER'S SYNDROME [None]
